FAERS Safety Report 8060776-1 (Version None)
Quarter: 2012Q1

REPORT INFORMATION
  Report Type: 
  Country: None (occurrence: None)
  Receive Date: 20120120
  Receipt Date: 20110111
  Transmission Date: 20120608
  Serious: No
  Sender: FDA-Public Use
  Company Number: US-ALLERGAN-1100346US

PATIENT
  Age: 75 Year
  Sex: Male

DRUGS (3)
  1. RESTASIS [Suspect]
     Indication: DRY EYE
  2. SOOTHE XL [Concomitant]
     Indication: DRY EYE
     Dosage: UNK
  3. GENTEAL                            /00445101/ [Concomitant]
     Indication: DRY EYE

REACTIONS (2)
  - BURNING SENSATION [None]
  - APPLICATION SITE PAIN [None]
